FAERS Safety Report 7234191-4 (Version None)
Quarter: 2011Q1

REPORT INFORMATION
  Report Type: 
  Country: None (occurrence: None)
  Receive Date: 20110119
  Receipt Date: 20110111
  Transmission Date: 20110831
  Serious: Yes (Other)
  Sender: FDA-Public Use
  Company Number: US-SANOFI-AVENTIS-2010SA071240

PATIENT
  Age: 8 Year
  Sex: Male

DRUGS (3)
  1. SOLOSTAR [Suspect]
     Dates: start: 20100101
  2. NOVOLOG [Suspect]
  3. LANTUS [Suspect]
     Dosage: DOSE:11 UNIT(S)
     Route: 058
     Dates: start: 20100101

REACTIONS (2)
  - PRODUCT QUALITY ISSUE [None]
  - HYPERGLYCAEMIA [None]
